FAERS Safety Report 15015915 (Version 4)
Quarter: 2019Q2

REPORT INFORMATION
  Report Type: Report from Study
  Country: US (occurrence: US)
  Receive Date: 20180615
  Receipt Date: 20190529
  Transmission Date: 20190711
  Serious: No
  Sender: FDA-Public Use
  Company Number: US-SA-2018SA159333

PATIENT
  Age: 24 Year
  Sex: Male
  Weight: 49.8 kg

DRUGS (3)
  1. AGALSIDASE BETA [Suspect]
     Active Substance: AGALSIDASE BETA
     Indication: FABRY^S DISEASE
     Dosage: 100, Q2
     Route: 041
     Dates: start: 20120328
  2. AGALSIDASE BETA [Suspect]
     Active Substance: AGALSIDASE BETA
     Dosage: 1.3 MG/KG, QOW (95 MG)
     Route: 041
  3. AGALSIDASE BETA [Suspect]
     Active Substance: AGALSIDASE BETA
     Dosage: 1 MG/KG, QOW (50 MG)
     Route: 041

REACTIONS (2)
  - Product use issue [Unknown]
  - Antibody test positive [Unknown]

NARRATIVE: CASE EVENT DATE: 20180521
